FAERS Safety Report 12590907 (Version 3)
Quarter: 2017Q1

REPORT INFORMATION
  Report Type: Spontaneous
  Country: US (occurrence: US)
  Receive Date: 20160726
  Receipt Date: 20170309
  Transmission Date: 20170428
  Serious: No
  Sender: FDA-Public Use
  Company Number: US-ASTRAZENECA-2016SE77983

PATIENT
  Age: 25372 Day
  Sex: Female
  Weight: 99.8 kg

DRUGS (10)
  1. OXYCOD/ACETAMIN [Concomitant]
     Dosage: 5-325MG
  2. HYDROCOD/HOM [Concomitant]
     Dosage: 5-1.5MG/5ML
  3. METFORMIN [Concomitant]
     Active Substance: METFORMIN HYDROCHLORIDE
  4. VICTOZA [Concomitant]
     Active Substance: LIRAGLUTIDE
  5. CYCLOBENZAPRINE [Concomitant]
     Active Substance: CYCLOBENZAPRINE
  6. NITROFURANTOIN. [Concomitant]
     Active Substance: NITROFURANTOIN
  7. AZITHROMYCIN ANHYDROUS. [Concomitant]
     Active Substance: AZITHROMYCIN ANHYDROUS
  8. BYDUREON [Suspect]
     Active Substance: EXENATIDE
     Indication: TYPE 2 DIABETES MELLITUS
     Route: 058
     Dates: start: 201412
  9. TRUETEST TES [Concomitant]
  10. TRADJENTA [Concomitant]
     Active Substance: LINAGLIPTIN

REACTIONS (4)
  - Nausea [Unknown]
  - Injection site nodule [Unknown]
  - Eructation [Unknown]
  - Underdose [Unknown]

NARRATIVE: CASE EVENT DATE: 20160714
